FAERS Safety Report 8483097-1 (Version None)
Quarter: 2012Q3

REPORT INFORMATION
  Report Type: 
  Country: None (occurrence: None)
  Receive Date: 20120702
  Receipt Date: 20120625
  Transmission Date: 20120928
  Serious: Yes (Death, Life-Threatening, Other)
  Sender: FDA-Public Use
  Company Number: US-ROXANE LABORATORIES, INC.-2012-RO-01473RO

PATIENT
  Age: 47 Year
  Sex: Female

DRUGS (11)
  1. AZITHROMYCIN [Suspect]
     Indication: BRONCHITIS
  2. DEXAMETHASONE SODIUM PHOSPHATE [Suspect]
     Dosage: 8 MG
     Route: 048
  3. DEXAMETHASONE SODIUM PHOSPHATE [Suspect]
     Dosage: 10 MG
  4. BENDAMUSTINE HYDROCHLORIDE [Suspect]
     Indication: BREAST CANCER METASTATIC
     Route: 042
  5. BEVACIZUMAB [Suspect]
     Indication: BREAST CANCER METASTATIC
  6. TRIMETHOPRIM [Suspect]
     Indication: PNEUMOCYSTIS JIROVECI PNEUMONIA
     Route: 048
  7. SULFAMETHOXAZOLE [Suspect]
     Indication: PNEUMOCYSTIS JIROVECI PNEUMONIA
     Route: 048
  8. DEXAMETHASONE SODIUM PHOSPHATE [Suspect]
     Indication: PROPHYLAXIS OF NAUSEA AND VOMITING
     Dosage: 12 MG
     Route: 048
  9. LEVOFLOXACIN [Suspect]
  10. ERLOTINIB HYDROCHLORIDE [Suspect]
     Indication: BREAST CANCER METASTATIC
     Route: 048
  11. PACLITAXEL [Suspect]
     Indication: BREAST CANCER METASTATIC

REACTIONS (5)
  - PNEUMOCYSTIS JIROVECI PNEUMONIA [None]
  - SEPSIS [None]
  - LYMPHOPENIA [None]
  - ACUTE RESPIRATORY DISTRESS SYNDROME [None]
  - DISEASE PROGRESSION [None]
